FAERS Safety Report 12838524 (Version 1)
Quarter: 2016Q4

REPORT INFORMATION
  Report Type: Spontaneous
  Country: US (occurrence: US)
  Receive Date: 20161008
  Receipt Date: 20161008
  Transmission Date: 20170207
  Serious: Yes (Hospitalization)
  Sender: FDA-Public Use
  Company Number: None

PATIENT
  Age: 54 Year
  Sex: Male
  Weight: 90.2 kg

DRUGS (2)
  1. ERBITUX [Suspect]
     Active Substance: CETUXIMAB
     Dates: end: 20160831
  2. CAMPTOSAR [Suspect]
     Active Substance: IRINOTECAN HYDROCHLORIDE
     Dates: end: 20160831

REACTIONS (8)
  - Pyuria [None]
  - Feeling abnormal [None]
  - Lactic acidosis [None]
  - Rectal perforation [None]
  - Blood sodium decreased [None]
  - Tachycardia [None]
  - Sepsis [None]
  - Urinary retention [None]

NARRATIVE: CASE EVENT DATE: 20160928
